FAERS Safety Report 19783515 (Version 2)
Quarter: 2021Q3

REPORT INFORMATION
  Report Type: Spontaneous
  Country: US (occurrence: US)
  Receive Date: 20210902
  Receipt Date: 20210908
  Transmission Date: 20211014
  Serious: No
  Sender: FDA-Public Use
  Company Number: US-SA-2021SA288318

PATIENT
  Age: 63 Year
  Sex: Female

DRUGS (1)
  1. DUPIXENT [Suspect]
     Active Substance: DUPILUMAB
     Dosage: 300 MG, QOW
     Route: 058
     Dates: start: 20210810

REACTIONS (6)
  - Rhinorrhoea [Unknown]
  - Anosmia [Unknown]
  - Ageusia [Unknown]
  - Condition aggravated [Unknown]
  - Asthma [Unknown]
  - Nasal congestion [Unknown]

NARRATIVE: CASE EVENT DATE: 202108
